FAERS Safety Report 7235598-1 (Version None)
Quarter: 2011Q1

REPORT INFORMATION
  Report Type: 
  Country: None (occurrence: None)
  Receive Date: 20110120
  Receipt Date: 20110117
  Transmission Date: 20110831
  Serious: Yes (Death)
  Sender: FDA-Public Use
  Company Number: PHBS2007US21925

PATIENT
  Sex: Male

DRUGS (2)
  1. EXJADE [Suspect]
     Indication: MYELODYSPLASTIC SYNDROME
     Dosage: 500 MG, UNK
  2. EXJADE [Suspect]
     Dosage: 2000 MG, DAILY
     Route: 048
     Dates: start: 20070907, end: 20070925

REACTIONS (3)
  - DEATH [None]
  - EPISTAXIS [None]
  - RASH [None]
